FAERS Safety Report 9657289 (Version 1)
Quarter: 2013Q4

REPORT INFORMATION
  Report Type: Spontaneous
  Country: IT (occurrence: IT)
  Receive Date: 20131030
  Receipt Date: 20131030
  Transmission Date: 20140711
  Serious: Yes (Life-Threatening)
  Sender: FDA-Public Use
  Company Number: IT-TEVA-439162ISR

PATIENT
  Age: 48 Year
  Sex: Female
  Weight: 65 kg

DRUGS (9)
  1. CARBOLITHIUM 300MG [Suspect]
     Indication: SCHIZOAFFECTIVE DISORDER
     Dosage: 3 DOSAGE FORMS DAILY;
     Route: 048
     Dates: start: 20120101, end: 20130917
  2. LORAZEPAM [Concomitant]
     Dosage: 7.5 MILLIGRAM DAILY;
     Route: 048
     Dates: start: 20130101, end: 20130917
  3. QUETIAPINA [Concomitant]
     Indication: SCHIZOAFFECTIVE DISORDER
     Dosage: 900 MILLIGRAM DAILY;
     Route: 048
     Dates: start: 20130907, end: 20130917
  4. RISPERIDONE [Concomitant]
     Dosage: 4 MILLIGRAM DAILY;
     Route: 048
     Dates: start: 20130101, end: 20130917
  5. OMEPRAZOLO [Concomitant]
     Dosage: 20 MILLIGRAM DAILY;
     Route: 048
     Dates: start: 20130101, end: 20130917
  6. DEPAKIN CHRONO 500MG [Concomitant]
     Indication: SCHIZOPHRENIFORM DISORDER
     Dosage: 4 DOSAGE FORMS DAILY;
     Route: 048
     Dates: start: 20130101, end: 20130917
  7. VALDORM 30MG [Concomitant]
     Dosage: 1 DOSAGE FORMS DAILY;
     Route: 048
     Dates: start: 20130101, end: 20130917
  8. SPIRIVA RESPIMAT [Concomitant]
     Indication: CHRONIC OBSTRUCTIVE PULMONARY DISEASE
  9. MONTEGEN 10 MG [Concomitant]
     Indication: CHRONIC OBSTRUCTIVE PULMONARY DISEASE
     Dosage: 1 DOSAGE FORMS DAILY;
     Route: 048

REACTIONS (4)
  - Hypernatraemia [Recovered/Resolved with Sequelae]
  - Nephrogenic diabetes insipidus [Recovered/Resolved with Sequelae]
  - Polyuria [Recovered/Resolved with Sequelae]
  - Hypercapnic coma [Recovered/Resolved with Sequelae]
